FAERS Safety Report 26135715 (Version 2)
Quarter: 2025Q4

REPORT INFORMATION
  Report Type: Report from Study
  Country: US (occurrence: US)
  Receive Date: 20251209
  Receipt Date: 20251231
  Transmission Date: 20260119
  Serious: Yes (Other)
  Sender: PFIZER
  Company Number: US-PFIZER INC-202500238567

PATIENT
  Age: 89 Year
  Sex: Male
  Weight: 71.655 kg

DRUGS (9)
  1. VYNDAMAX [Suspect]
     Active Substance: TAFAMIDIS
     Indication: Amyloidosis
     Dosage: 61 MG, 1X/DAY
     Route: 048
     Dates: start: 202410
  2. METOPROLOL [Concomitant]
     Active Substance: METOPROLOL
     Dosage: 25 MG 1/2 TWICE A DAY
  3. WARFARIN [Concomitant]
     Active Substance: WARFARIN
     Dosage: 5MG M, W, F, 10 MG T, TH, SAT, SUN
  4. EMPAGLIFLOZIN [Concomitant]
     Active Substance: EMPAGLIFLOZIN
     Dosage: 10 MG TABLET MORNING
  5. ATORVASTATIN [Concomitant]
     Active Substance: ATORVASTATIN
     Dosage: 40 MG, DAILY
  6. BUMETANIDE [Concomitant]
     Active Substance: BUMETANIDE
     Dosage: 2 TABLET DAILY
  7. LISINOPRIL [Concomitant]
     Active Substance: LISINOPRIL
     Dosage: 5 MG, DAILY
  8. SPIRONOLACTONE [Concomitant]
     Active Substance: SPIRONOLACTONE
     Dosage: 1/2 TABLET DAILY
  9. PANTOPRAZOLE [Concomitant]
     Active Substance: PANTOPRAZOLE
     Dosage: 40 MG, DAILY

REACTIONS (3)
  - Paracentesis [Unknown]
  - Gait disturbance [Recovering/Resolving]
  - Fatigue [Unknown]
